FAERS Safety Report 8524730-5 (Version None)
Quarter: 2012Q3

REPORT INFORMATION
  Report Type: 
  Country: None (occurrence: None)
  Receive Date: 20120720
  Receipt Date: 20120711
  Transmission Date: 20120928
  Serious: Yes (Hospitalization)
  Sender: FDA-Public Use
  Company Number: KR-ELI_LILLY_AND_COMPANY-KR201207004129

PATIENT
  Sex: Female

DRUGS (2)
  1. HUMALOG MIX 75/25 [Suspect]
     Indication: TYPE 2 DIABETES MELLITUS
     Dosage: UNK
     Route: 058
     Dates: start: 20120509
  2. HUMALOG MIX 75/25 [Suspect]
     Dosage: UNK, BID
     Route: 058

REACTIONS (3)
  - MOVEMENT DISORDER [None]
  - SPINAL COLUMN STENOSIS [None]
  - HYPERGLYCAEMIA [None]
